FAERS Safety Report 17798627 (Version 1)
Quarter: 2020Q2

REPORT INFORMATION
  Report Type: Spontaneous
  Country: US (occurrence: US)
  Receive Date: 20200518
  Receipt Date: 20200518
  Transmission Date: 20200714
  Serious: Yes (Hospitalization)
  Sender: FDA-Public Use
  Company Number: US-CURIUM-200200118

PATIENT
  Age: 89 Year
  Sex: Male

DRUGS (3)
  1. THALLOUS CHLORIDE TL 201 [Suspect]
     Active Substance: THALLOUS CHLORIDE TL-201
     Indication: SCAN MYOCARDIAL PERFUSION
     Route: 042
     Dates: start: 20020201, end: 20020201
  2. ADENOSINE. [Concomitant]
     Active Substance: ADENOSINE
     Indication: CARDIAC STRESS TEST
     Route: 042
     Dates: start: 20020201, end: 20020201
  3. THALLOUS CHLORIDE TL 201 [Suspect]
     Active Substance: THALLOUS CHLORIDE TL-201
     Indication: SCAN MYOCARDIAL PERFUSION
     Route: 042
     Dates: start: 20020201, end: 20020201

REACTIONS (4)
  - Confusional state [Recovering/Resolving]
  - Dizziness [Recovering/Resolving]
  - Staphylococcal infection [Recovering/Resolving]
  - Nausea [Recovering/Resolving]

NARRATIVE: CASE EVENT DATE: 200202
